FAERS Safety Report 16777747 (Version 6)
Quarter: 2020Q4

REPORT INFORMATION
  Report Type: Spontaneous
  Country: US (occurrence: US)
  Receive Date: 20190905
  Receipt Date: 20201009
  Transmission Date: 20210113
  Serious: Yes (Death)
  Sender: FDA-Public Use
  Company Number: US-PFIZER INC-2019371564

PATIENT
  Age: 4 Year
  Sex: Male
  Weight: 15.3 kg

DRUGS (7)
  1. ROPIVACAINE HYDROCHLORIDE. [Suspect]
     Active Substance: ROPIVACAINE HYDROCHLORIDE
     Indication: PAIN
     Dosage: 6.5 UG/KG, UNK (INFUSION AT 6 MG/H (6.5 MCG/KG/MIN) VIA AN ON-Q PUMP)
     Route: 058
  2. FENTANYL. [Concomitant]
     Active Substance: FENTANYL
     Dosage: 1 UG/KG, UNK (MCG/KG/H)
  3. TPN [AMINO ACIDS NOS;CARBOHYDRATES NOS;MINERALS NOS;VITAMINS NOS] [Concomitant]
     Active Substance: AMINO ACIDS\CARBOHYDRATES\MINERALS\VITAMINS
     Dosage: 45 ML/H
  4. CEFTRIAXONE. [Concomitant]
     Active Substance: CEFTRIAXONE
     Dosage: 50 MG/KG, 1X/DAY
  5. PANTOPRAZOLE [Concomitant]
     Active Substance: PANTOPRAZOLE
     Dosage: 0.5 MG/KG, DAILY
     Route: 042
  6. PROPOFOL. [Concomitant]
     Active Substance: PROPOFOL
     Dosage: 120 UG/KG, UNK (120 MCG/KG/MIN)
  7. ROPIVACAINE HYDROCHLORIDE. [Suspect]
     Active Substance: ROPIVACAINE HYDROCHLORIDE
     Dosage: 120 UG/KG (120 MCG/KG/MIN, FOR 4 DAYS)
     Route: 051

REACTIONS (6)
  - Local anaesthetic systemic toxicity [Fatal]
  - Cardiac arrest [Fatal]
  - Tachycardia [Fatal]
  - Product use issue [Unknown]
  - Arrhythmia [Fatal]
  - Off label use [Unknown]
